FAERS Safety Report 13607137 (Version 1)
Quarter: 2017Q2

REPORT INFORMATION
  Report Type: Spontaneous
  Country: US (occurrence: US)
  Receive Date: 20170602
  Receipt Date: 20170602
  Transmission Date: 20170830
  Serious: No
  Sender: FDA-Public Use
  Company Number: US-TEVA-772423USA

PATIENT
  Age: 4 Year
  Sex: Male
  Weight: 20.43 kg

DRUGS (3)
  1. PROAIR HFA [Concomitant]
     Active Substance: ALBUTEROL SULFATE
     Indication: ASTHMA
  2. QVAR [Suspect]
     Active Substance: BECLOMETHASONE DIPROPIONATE
     Indication: RESPIRATORY DISORDER
     Dosage: TWO PUFFS IN THE MORNING AND AT NIGHT
     Dates: start: 201611
  3. PROAIR HFA [Concomitant]
     Active Substance: ALBUTEROL SULFATE
     Indication: RESPIRATORY DISORDER

REACTIONS (3)
  - Drug administered to patient of inappropriate age [Unknown]
  - Bronchitis [Unknown]
  - Extra dose administered [Unknown]

NARRATIVE: CASE EVENT DATE: 201704
